FAERS Safety Report 16910276 (Version 2)
Quarter: 2020Q1

REPORT INFORMATION
  Report Type: Spontaneous
  Country: JP (occurrence: JP)
  Receive Date: 20191011
  Receipt Date: 20200123
  Transmission Date: 20200409
  Serious: Yes (Other)
  Sender: FDA-Public Use
  Company Number: JP-009507513-1910JPN000695J

PATIENT
  Age: 70 Year
  Sex: Male

DRUGS (3)
  1. PEMETREXED DISODIUM [Suspect]
     Active Substance: PEMETREXED DISODIUM
     Dosage: START WITH REDUCED DOSE
     Route: 041
  2. CARBOPLATIN. [Concomitant]
     Active Substance: CARBOPLATIN
     Dosage: UNK
     Route: 041
  3. KEYTRUDA [Suspect]
     Active Substance: PEMBROLIZUMAB
     Indication: NON-SMALL CELL LUNG CANCER
     Dosage: 200 MILLIGRAM, Q3W
     Route: 041
     Dates: start: 20190926

REACTIONS (1)
  - Renal impairment [Unknown]

NARRATIVE: CASE EVENT DATE: 201910
